FAERS Safety Report 19244871 (Version 1)
Quarter: 2021Q2

REPORT INFORMATION
  Report Type: Spontaneous
  Country: US (occurrence: US)
  Receive Date: 20210512
  Receipt Date: 20210512
  Transmission Date: 20210717
  Serious: Yes (Other)
  Sender: FDA-Public Use
  Company Number: US-ALLERGAN-2116792US

PATIENT
  Sex: Female

DRUGS (1)
  1. RESTASIS [Suspect]
     Active Substance: CYCLOSPORINE
     Indication: DRY EYE

REACTIONS (4)
  - Eye laser surgery [Unknown]
  - Atrioventricular block [Unknown]
  - Conjunctival bleb [Unknown]
  - Cardiac operation [Unknown]

NARRATIVE: CASE EVENT DATE: 2004
